FAERS Safety Report 4655315-9 (Version None)
Quarter: 2005Q2

REPORT INFORMATION
  Report Type: 
  Country: None (occurrence: None)
  Receive Date: 20050505
  Receipt Date: 20050418
  Transmission Date: 20051028
  Serious: Yes (Other)
  Sender: FDA-Public Use
  Company Number: US_0504115826

PATIENT
  Age: 27 Year
  Sex: Male

DRUGS (1)
  1. PROZAC [Suspect]

REACTIONS (3)
  - AGGRESSION [None]
  - LEGAL PROBLEM [None]
  - MURDER [None]
